FAERS Safety Report 5470628-9 (Version None)
Quarter: 2007Q3

REPORT INFORMATION
  Report Type: 
  Country: None (occurrence: None)
  Receive Date: 20070927
  Receipt Date: 20070927
  Transmission Date: 20080115
  Serious: No
  Sender: FDA-Public Use
  Company Number: None

PATIENT
  Age: 37 Year
  Sex: Male

DRUGS (1)
  1. CYMBALTA [Suspect]
     Dates: start: 20060510, end: 20060625

REACTIONS (8)
  - ALCOHOL USE [None]
  - HEPATIC NECROSIS [None]
  - HEPATIC STEATOSIS [None]
  - INFLUENZA LIKE ILLNESS [None]
  - LIVER INJURY [None]
  - NO THERAPEUTIC RESPONSE [None]
  - RENAL FAILURE [None]
  - SELF-MEDICATION [None]
